FAERS Safety Report 12799592 (Version 3)
Quarter: 2017Q1

REPORT INFORMATION
  Report Type: Spontaneous
  Country: JP (occurrence: JP)
  Receive Date: 20160930
  Receipt Date: 20170217
  Transmission Date: 20170428
  Serious: Yes (Hospitalization)
  Sender: FDA-Public Use
  Company Number: JP-AMGEN-JPNSP2016134294

PATIENT
  Age: 88 Year
  Sex: Female

DRUGS (11)
  1. NESP [Suspect]
     Active Substance: DARBEPOETIN ALFA
     Indication: NEPHROGENIC ANAEMIA
     Dosage: 30 MUG, UNK
     Route: 058
     Dates: start: 20160915
  2. BONVIVA [Concomitant]
     Active Substance: IBANDRONATE SODIUM
     Indication: OSTEOPOROSIS
     Dosage: UNK
     Route: 065
     Dates: start: 201503
  3. LASIX [Concomitant]
     Active Substance: FUROSEMIDE
     Dosage: UNK
     Route: 065
  4. NESP [Suspect]
     Active Substance: DARBEPOETIN ALFA
     Indication: PRODUCT USED FOR UNKNOWN INDICATION
     Dosage: 30 MUG, UNK
     Route: 058
     Dates: start: 20160701
  5. FLUITRAN [Concomitant]
     Active Substance: TRICHLORMETHIAZIDE
     Indication: HYPERTENSION
     Dosage: 0.5 MG, UNK
     Route: 048
  6. AVAPRO [Concomitant]
     Active Substance: IRBESARTAN
     Dosage: UNK, AS NECESSARY
     Route: 048
  7. POLYFUL [Concomitant]
     Active Substance: CALCIUM POLYCARBOPHIL
     Dosage: UNK
     Route: 048
  8. MERISLON [Concomitant]
     Active Substance: BETAHISTINE MESILATE
     Dosage: UNK
     Route: 048
  9. ADETPHOS [Concomitant]
     Active Substance: ADENOSINE TRIPHOSPHATE
     Dosage: 20 MG, UNK
  10. AMLODIPINE [Concomitant]
     Active Substance: AMLODIPINE BESYLATE
     Indication: HYPERTENSION
     Dosage: 2.5 MG, UNK
     Route: 048
  11. LAC-B [Concomitant]
     Active Substance: BIFIDOBACTERIUM SPP.
     Dosage: UNK
     Route: 048

REACTIONS (3)
  - Erythema [Recovered/Resolved]
  - Cellulitis [Recovering/Resolving]
  - Oedema peripheral [Recovering/Resolving]

NARRATIVE: CASE EVENT DATE: 20160709
